FAERS Safety Report 5531525-3 (Version None)
Quarter: 2007Q4

REPORT INFORMATION
  Report Type: 
  Country: None (occurrence: None)
  Receive Date: 20071128
  Receipt Date: 20071128
  Transmission Date: 20080405
  Serious: Yes (Other)
  Sender: FDA-Public Use
  Company Number: None

PATIENT
  Age: 39 Year
  Sex: Female
  Weight: 58.9676 kg

DRUGS (1)
  1. CHANTIX [Suspect]
     Indication: SMOKING CESSATION THERAPY
     Dosage: 1 X A DAY 1 WEEK PO; 2 X A DAY 1 WEEK PO
     Route: 048
     Dates: start: 20071009, end: 20071101

REACTIONS (2)
  - FEAR [None]
  - MOOD SWINGS [None]
